FAERS Safety Report 6569292-7 (Version None)
Quarter: 2010Q1

REPORT INFORMATION
  Report Type: 
  Country: None (occurrence: None)
  Receive Date: 20100201
  Receipt Date: 20100201
  Transmission Date: 20100710
  Serious: Yes (Other)
  Sender: FDA-Public Use
  Company Number: None

PATIENT
  Sex: Male
  Weight: 61.68 kg

DRUGS (1)
  1. DORIBAX [Suspect]
     Indication: OSTEOMYELITIS
     Dosage: 500 MG Q8H IVPB
     Route: 042
     Dates: start: 20090903, end: 20090910

REACTIONS (2)
  - MUSCLE TWITCHING [None]
  - SPEECH DISORDER [None]
